FAERS Safety Report 5922853-8 (Version None)
Quarter: 2008Q4

REPORT INFORMATION
  Report Type: 
  Country: None (occurrence: None)
  Receive Date: 20081017
  Receipt Date: 20081010
  Transmission Date: 20090506
  Serious: Yes (Death, Hospitalization, Disabling, Other)
  Sender: FDA-Public Use
  Company Number: PHHY2008JP17592

PATIENT
  Sex: Female
  Weight: 64 kg

DRUGS (5)
  1. FEMARA [Suspect]
     Indication: BREAST CANCER
     Dosage: 2.5 MG/DAY
     Route: 048
     Dates: start: 20061229, end: 20080807
  2. FARMORUBICIN [Suspect]
     Dosage: 90 MG/DAY
     Dates: start: 20060720, end: 20060921
  3. ENDOXAN [Suspect]
     Dosage: 750 MG/DAY
     Dates: start: 20060720, end: 20060921
  4. FLUOROURACIL [Suspect]
     Dosage: 750 MG/DAY
     Dates: start: 20060720, end: 20060921
  5. TAXOL [Suspect]
     Dosage: 120 MG/DAY
     Dates: start: 20061012, end: 20061228

REACTIONS (11)
  - AORTIC VALVE INCOMPETENCE [None]
  - BLOOD PRESSURE INCREASED [None]
  - CARDIAC FAILURE [None]
  - CARDIAC MURMUR [None]
  - CARDIAC VALVE DISEASE [None]
  - CARDIOMEGALY [None]
  - EJECTION FRACTION DECREASED [None]
  - HYPERLIPIDAEMIA [None]
  - LEFT VENTRICULAR HYPERTROPHY [None]
  - SUPRAVENTRICULAR EXTRASYSTOLES [None]
  - VENTRICULAR EXTRASYSTOLES [None]
